FAERS Safety Report 7205424-5 (Version None)
Quarter: 2010Q4

REPORT INFORMATION
  Report Type: 
  Country: None (occurrence: None)
  Receive Date: 20101231
  Receipt Date: 20101220
  Transmission Date: 20110411
  Serious: Yes (Other)
  Sender: FDA-Public Use
  Company Number: PHHY2010US86541

PATIENT

DRUGS (1)
  1. RECLAST [Suspect]
     Dosage: UNK

REACTIONS (1)
  - LUMBAR VERTEBRAL FRACTURE [None]
